FAERS Safety Report 8567419-9 (Version None)
Quarter: 2012Q3

REPORT INFORMATION
  Report Type: 
  Country: None (occurrence: None)
  Receive Date: 20120803
  Receipt Date: 20120731
  Transmission Date: 20120928
  Serious: Yes (Other)
  Sender: FDA-Public Use
  Company Number: PHHY2011BR90705

PATIENT
  Sex: Female

DRUGS (1)
  1. SANDOSTATIN LAR [Suspect]
     Indication: ACROMEGALY
     Dosage: UNK UKN, UNK
     Route: 065

REACTIONS (10)
  - HYPOPITUITARISM [None]
  - DISEASE PROGRESSION [None]
  - AMNESIA [None]
  - DIARRHOEA [None]
  - ASTHENIA [None]
  - DEPRESSION [None]
  - ABDOMINAL DISTENSION [None]
  - FATIGUE [None]
  - PAIN [None]
  - MALAISE [None]
